FAERS Safety Report 16983984 (Version 3)
Quarter: 2020Q3

REPORT INFORMATION
  Report Type: Spontaneous
  Country: CN (occurrence: CN)
  Receive Date: 20191101
  Receipt Date: 20191202
  Transmission Date: 20201105
  Serious: Yes (Hospitalization)
  Sender: FDA-Public Use
  Company Number: CN-CELGENEUS-CHN-20191009299

PATIENT
  Age: 60 Year
  Sex: Male
  Weight: 50 kg

DRUGS (6)
  1. ABRAXANE [Suspect]
     Active Substance: PACLITAXEL
     Indication: SQUAMOUS CELL CARCINOMA OF LUNG
     Dosage: 100MG/M2/148MG
     Route: 041
     Dates: start: 20191003, end: 20191010
  2. TYLENOL [Concomitant]
     Active Substance: ACETAMINOPHEN
     Indication: PRODUCT USED FOR UNKNOWN INDICATION
     Route: 048
     Dates: start: 20191010
  3. AVELOX [Concomitant]
     Active Substance: MOXIFLOXACIN HYDROCHLORIDE
     Indication: PRODUCT USED FOR UNKNOWN INDICATION
     Route: 048
     Dates: start: 20191010
  4. CARBOPLATIN. [Suspect]
     Active Substance: CARBOPLATIN
     Indication: SQUAMOUS CELL CARCINOMA OF LUNG
     Dosage: 400 MILLIGRAM
     Route: 041
     Dates: start: 20191003, end: 20191003
  5. AVELOX [Concomitant]
     Active Substance: MOXIFLOXACIN HYDROCHLORIDE
     Indication: ANTI-INFECTIVE THERAPY
     Route: 065
  6. SERPLULIMAB. [Suspect]
     Active Substance: SERPLULIMAB
     Indication: SQUAMOUS CELL CARCINOMA OF LUNG
     Dosage: 225 MILLIGRAM
     Route: 041
     Dates: start: 20191003, end: 20191003

REACTIONS (1)
  - Myelosuppression [Recovered/Resolved]

NARRATIVE: CASE EVENT DATE: 20191015
